FAERS Safety Report 24452999 (Version 1)
Quarter: 2024Q4

REPORT INFORMATION
  Report Type: Spontaneous
  Country: US (occurrence: US)
  Receive Date: 20241017
  Receipt Date: 20241017
  Transmission Date: 20250114
  Serious: No
  Sender: SUNOVION
  Company Number: US-SMPA-202406-URV-000927AA

PATIENT
  Age: 88 Year
  Sex: Female
  Weight: 68.027 kg

DRUGS (2)
  1. GEMTESA [Suspect]
     Active Substance: VIBEGRON
     Indication: Incontinence
     Dosage: 1 TAB, QD, EARLY AFTERNOON
     Route: 065
     Dates: start: 202401
  2. ELIQUIS [Concomitant]
     Active Substance: APIXABAN
     Indication: Product used for unknown indication
     Dosage: UNK, BID

REACTIONS (1)
  - Blood pressure increased [Unknown]
